FAERS Safety Report 17725029 (Version 2)
Quarter: 2020Q2

REPORT INFORMATION
  Report Type: Spontaneous
  Country: FR (occurrence: FR)
  Receive Date: 20200429
  Receipt Date: 20200508
  Transmission Date: 20200714
  Serious: Yes (Life-Threatening, Hospitalization, Other)
  Sender: FDA-Public Use
  Company Number: FR-MYLANLABS-2020M1042950

PATIENT
  Age: 94 Year
  Sex: Male
  Weight: 88 kg

DRUGS (5)
  1. FONDAPARINUX [Suspect]
     Active Substance: FONDAPARINUX
     Indication: HAEMATOMA
     Dosage: 1 DOSAGE FORM, QD (14 DAYS)
     Dates: start: 20200324, end: 20200406
  2. PARACETAMOL [Concomitant]
     Active Substance: ACETAMINOPHEN
     Dosage: 500 MILLIGRAM
  3. FONDAPARINUX [Suspect]
     Active Substance: FONDAPARINUX
     Indication: THROMBOSIS PROPHYLAXIS
     Dosage: 1 DOSAGE FORM, QD (14 DAYS)
     Dates: start: 20200407
  4. TRAMADOL. [Concomitant]
     Active Substance: TRAMADOL
     Dosage: UNK
  5. BISOPROLOL [Concomitant]
     Active Substance: BISOPROLOL
     Indication: FLUID RETENTION
     Dosage: 1.25 MILLIGRAM, QD

REACTIONS (13)
  - Jaundice [Not Recovered/Not Resolved]
  - Faeces pale [Unknown]
  - Product use issue [Unknown]
  - Bile duct obstruction [Unknown]
  - General physical health deterioration [Unknown]
  - Nausea [Unknown]
  - Epistaxis [Not Recovered/Not Resolved]
  - Yellow skin [Unknown]
  - Chromaturia [Unknown]
  - Toxicity to various agents [Unknown]
  - Decreased appetite [Not Recovered/Not Resolved]
  - Hypotension [Unknown]
  - Hepatomegaly [Unknown]

NARRATIVE: CASE EVENT DATE: 20200325
